FAERS Safety Report 6244258-5 (Version None)
Quarter: 2009Q2

REPORT INFORMATION
  Report Type: 
  Country: None (occurrence: None)
  Receive Date: 20090619
  Receipt Date: 20090120
  Transmission Date: 20091009
  Serious: Yes (Hospitalization)
  Sender: FDA-Public Use
  Company Number: 2009PL000084

PATIENT
  Age: 41 Year
  Sex: Female
  Weight: 112.4921 kg

DRUGS (11)
  1. IMURAN [Suspect]
     Indication: CROHN'S DISEASE
     Dosage: 250 MG;QD;PO
     Route: 048
     Dates: start: 20051121, end: 20051205
  2. PLACEBO (PLACEBO) LYOPHILIZED POWDER [Suspect]
     Indication: CROHN'S DISEASE
     Dosage: 560 MG;QD;IV
     Route: 042
     Dates: start: 20051121, end: 20051205
  3. MESALAMINE [Concomitant]
  4. SERTRALINE [Concomitant]
  5. PROMETHAZINE [Concomitant]
  6. DONNATAL [Concomitant]
  7. CRYSELLE [Concomitant]
  8. PROPACET 100 [Concomitant]
  9. TOPROL-XL [Concomitant]
  10. PROMETHAZINE HCL [Concomitant]
  11. OXYCET [Concomitant]

REACTIONS (2)
  - CROHN'S DISEASE [None]
  - PANCREATITIS ACUTE [None]
